FAERS Safety Report 23421312 (Version 2)
Quarter: 2024Q1

REPORT INFORMATION
  Report Type: Spontaneous
  Country: US (occurrence: US)
  Receive Date: 20240119
  Receipt Date: 20240202
  Transmission Date: 20240409
  Serious: Yes (Hospitalization, Other)
  Sender: FDA-Public Use
  Company Number: US-MYLANLABS-2024M1005317

PATIENT
  Age: 4 Decade
  Sex: Male

DRUGS (8)
  1. FELBAMATE [Interacting]
     Active Substance: FELBAMATE
     Indication: Lennox-Gastaut syndrome
     Dosage: 1500 MILLIGRAM, TID
     Route: 065
  2. FELBAMATE [Interacting]
     Active Substance: FELBAMATE
     Dosage: UNK (RE-INITIATED AT REDUCED DOSE))
     Route: 065
  3. TOPIRAMATE [Interacting]
     Active Substance: TOPIRAMATE
     Indication: Lennox-Gastaut syndrome
     Dosage: UNK
     Route: 065
  4. RUFINAMIDE [Interacting]
     Active Substance: RUFINAMIDE
     Indication: Lennox-Gastaut syndrome
     Dosage: UNK (UNDER A TITRATING-UP SCHEDULE)
     Route: 065
  5. ZONISAMIDE [Interacting]
     Active Substance: ZONISAMIDE
     Indication: Lennox-Gastaut syndrome
     Dosage: UNK (UNDER A WEANING-OFF SCHEDULE)
     Route: 065
  6. POTASSIUM CITRATE [Suspect]
     Active Substance: POTASSIUM CITRATE
     Indication: Hypocitraturia
     Dosage: 10 MILLIEQUIVALENT, BID
     Route: 065
  7. POTASSIUM CITRATE [Suspect]
     Active Substance: POTASSIUM CITRATE
     Dosage: 20 MILLIEQUIVALENT, BID
     Route: 065
  8. LACOSAMIDE [Interacting]
     Active Substance: LACOSAMIDE
     Indication: Lennox-Gastaut syndrome
     Dosage: UNK
     Route: 065

REACTIONS (9)
  - Drug interaction [Recovered/Resolved]
  - Toxicity to various agents [Recovered/Resolved]
  - Calculus urinary [Recovered/Resolved]
  - Nephrolithiasis [Unknown]
  - pH urine increased [Unknown]
  - Hypocitraturia [Recovering/Resolving]
  - Urine output decreased [Unknown]
  - Drug ineffective for unapproved indication [Unknown]
  - Off label use [Unknown]
